FAERS Safety Report 24266332 (Version 1)
Quarter: 2024Q3

REPORT INFORMATION
  Report Type: Spontaneous
  Country: US (occurrence: US)
  Receive Date: 20240830
  Receipt Date: 20240830
  Transmission Date: 20241017
  Serious: No
  Sender: AMGEN
  Company Number: US-AMGEN-USASP2024168414

PATIENT
  Age: 85 Year
  Sex: Male

DRUGS (4)
  1. PREDNISONE [Suspect]
     Active Substance: PREDNISONE
     Indication: Immune thrombocytopenia
     Dosage: UNK
     Route: 065
  2. PROLIA [Suspect]
     Active Substance: DENOSUMAB
     Indication: Prophylaxis
     Dosage: 60 MILLIGRAM, Q6MO
     Route: 065
  3. FOSTAMATINIB [Concomitant]
     Active Substance: FOSTAMATINIB
     Indication: Immune thrombocytopenia
     Dosage: 100 MILLIGRAM, BID
  4. DEGARELIX [Concomitant]
     Active Substance: DEGARELIX
     Indication: Immune thrombocytopenia
     Dosage: 80 MILLIGRAM, QMO (EVERY 28 DAYS)
     Route: 058

REACTIONS (1)
  - Therapy non-responder [Unknown]
